FAERS Safety Report 20439228 (Version 3)
Quarter: 2022Q1

REPORT INFORMATION
  Report Type: Report from Study
  Country: TR (occurrence: TR)
  Receive Date: 20220207
  Receipt Date: 20220304
  Transmission Date: 20220423
  Serious: Yes (Life-Threatening)
  Sender: FDA-Public Use
  Company Number: TR-AstraZeneca-2022A026002

PATIENT
  Age: 54 Year
  Sex: Female

DRUGS (10)
  1. TRASTUZUMAB DERUXTECAN [Suspect]
     Active Substance: TRASTUZUMAB DERUXTECAN
     Indication: HER2 positive breast cancer
     Dosage: 5.4 MG/KG, ONCE EVERY 3 WK
     Route: 042
     Dates: start: 20211230, end: 20211230
  2. TRASTUZUMAB DERUXTECAN [Suspect]
     Active Substance: TRASTUZUMAB DERUXTECAN
     Dosage: 4.4 MG/KG, ONCE EVERY 3 WK
     Route: 042
     Dates: start: 20220120, end: 20220120
  3. TRASTUZUMAB DERUXTECAN [Suspect]
     Active Substance: TRASTUZUMAB DERUXTECAN
     Dosage: 4.4 MG/KG, ONCE EVERY 3 WK
     Route: 042
     Dates: start: 20220211, end: 20220211
  4. DURVALUMAB [Suspect]
     Active Substance: DURVALUMAB
     Indication: HER2 positive breast cancer
     Dosage: 1120 MG, ONCE EVERY 3 WK
     Route: 042
     Dates: start: 20211230, end: 20211230
  5. DURVALUMAB [Suspect]
     Active Substance: DURVALUMAB
     Dosage: 1120 MG, ONCE EVERY 3 WK
     Route: 042
     Dates: start: 20220120, end: 20220120
  6. DURVALUMAB [Suspect]
     Active Substance: DURVALUMAB
     Dosage: 1120 MG, ONCE EVERY 3 WK
     Route: 042
     Dates: start: 20220211, end: 20220211
  7. GLIFIX [Concomitant]
     Indication: Diabetes mellitus
     Route: 048
     Dates: start: 2011
  8. NEBIVOLOL HYDROCHLORIDE [Concomitant]
     Active Substance: NEBIVOLOL HYDROCHLORIDE
     Indication: Arrhythmia
     Dosage: 5 MG
     Route: 048
     Dates: start: 2011
  9. KYTRIL [Concomitant]
     Active Substance: GRANISETRON HYDROCHLORIDE
     Indication: Nausea
     Dosage: 2 MG
     Route: 048
     Dates: start: 20220103
  10. METOCLOPRAMIDE [Concomitant]
     Active Substance: METOCLOPRAMIDE
     Indication: Nausea
     Dosage: 10 MG
     Route: 048
     Dates: start: 20220103

REACTIONS (1)
  - Neutropenia [Recovered/Resolved]

NARRATIVE: CASE EVENT DATE: 20220113
